FAERS Safety Report 7936044-2 (Version None)
Quarter: 2011Q4

REPORT INFORMATION
  Report Type: 
  Country: None (occurrence: None)
  Receive Date: 20111123
  Receipt Date: 20111115
  Transmission Date: 20120403
  Serious: Yes (Hospitalization, Other)
  Sender: FDA-Public Use
  Company Number: GR-JNJFOC-20110901164

PATIENT
  Sex: Male
  Weight: 97 kg

DRUGS (15)
  1. DOXORUBICIN HCL [Suspect]
     Indication: MULTIPLE MYELOMA
     Route: 042
     Dates: start: 20110726
  2. DEXAMETHASONE [Suspect]
     Route: 042
     Dates: start: 20110506, end: 20110519
  3. DEXAMETHASONE [Suspect]
     Route: 042
     Dates: start: 20110727, end: 20110815
  4. DOXORUBICIN HCL [Suspect]
     Route: 042
     Dates: start: 20110506, end: 20110520
  5. DEXAMETHASONE [Suspect]
     Indication: MULTIPLE MYELOMA
     Route: 048
     Dates: start: 20110506
  6. VELCADE [Suspect]
     Route: 042
     Dates: start: 20110101
  7. DOXORUBICIN HCL [Suspect]
     Route: 042
     Dates: start: 20110612, end: 20110612
  8. VELCADE [Suspect]
     Route: 042
     Dates: start: 20110726
  9. VELCADE [Suspect]
     Route: 042
     Dates: start: 20110101
  10. VELCADE [Suspect]
     Route: 042
     Dates: start: 20110612
  11. DEXAMETHASONE [Suspect]
     Route: 042
     Dates: start: 20110612, end: 20110703
  12. VELCADE [Suspect]
     Route: 042
     Dates: start: 20110101
  13. VELCADE [Suspect]
     Indication: MULTIPLE MYELOMA
     Dosage: ON DAY 1, 4, 8 AND 11
     Route: 042
     Dates: start: 20110506, end: 20110520
  14. DEXAMETHASONE [Suspect]
     Route: 048
     Dates: start: 20110804
  15. DEXAMETHASONE [Suspect]
     Route: 042
     Dates: start: 20110704, end: 20110725

REACTIONS (6)
  - BLOOD CREATININE INCREASED [None]
  - PYREXIA [None]
  - LOWER RESPIRATORY TRACT INFECTION [None]
  - URINE OUTPUT DECREASED [None]
  - UPPER RESPIRATORY TRACT INFECTION [None]
  - HYPOXIA [None]
